FAERS Safety Report 13307313 (Version 1)
Quarter: 2017Q1

REPORT INFORMATION
  Report Type: Spontaneous
  Country: US (occurrence: US)
  Receive Date: 20170308
  Receipt Date: 20170308
  Transmission Date: 20170428
  Serious: Yes (Hospitalization, Other)
  Sender: FDA-Public Use
  Company Number: US-TEVA-745956USA

PATIENT
  Age: 67 Year
  Sex: Female
  Weight: 86.27 kg

DRUGS (9)
  1. VITAMIN B COMPLEX [Concomitant]
     Active Substance: CYANOCOBALAMIN\DEXPANTHENOL\NIACINAMIDE\PYRIDOXINE HYDROCHLORIDE\RIBOFLAVIN 5^-PHOSPHATE SODIUM\THIAMINE HYDROCHLORIDE\VITAMIN B COMPLEX
  2. ANASTROZOLE. [Suspect]
     Active Substance: ANASTROZOLE
     Route: 065
     Dates: end: 2016
  3. PROBIOTIC [Concomitant]
     Active Substance: PROBIOTICS NOS
  4. MAGNESIUM [Concomitant]
     Active Substance: MAGNESIUM
     Route: 048
  5. ARMOUR THYROID [Concomitant]
     Active Substance: THYROID, PORCINE
     Dosage: 60 MILLIGRAM DAILY;
     Route: 048
     Dates: start: 20150504
  6. EXEMESTANE. [Concomitant]
     Active Substance: EXEMESTANE
     Dosage: 25 MILLIGRAM DAILY;
     Route: 048
     Dates: start: 20160810
  7. VITAMIN D [Concomitant]
     Active Substance: CHOLECALCIFEROL
  8. LORAZEPAM. [Concomitant]
     Active Substance: LORAZEPAM
     Dosage: 1 MILLIGRAM DAILY;
     Route: 048
  9. ARIMIDEX [Concomitant]
     Active Substance: ANASTROZOLE
     Dosage: 1 MILLIGRAM DAILY;
     Route: 048
     Dates: start: 20160427

REACTIONS (19)
  - Diverticulitis [Recovering/Resolving]
  - Pain in extremity [Recovering/Resolving]
  - Productive cough [Not Recovered/Not Resolved]
  - Constipation [Not Recovered/Not Resolved]
  - Urinary tract infection [Recovering/Resolving]
  - Benign neoplasm of adrenal gland [Not Recovered/Not Resolved]
  - Abdominal pain [Not Recovered/Not Resolved]
  - Arthritis [Recovering/Resolving]
  - Lymphoedema [Unknown]
  - Insomnia [Not Recovered/Not Resolved]
  - Dehydration [Recovering/Resolving]
  - Spinal pain [Recovering/Resolving]
  - Arthralgia [Recovering/Resolving]
  - Breast pain [Recovered/Resolved]
  - Scar [Not Recovered/Not Resolved]
  - Nausea [Not Recovered/Not Resolved]
  - Hot flush [Not Recovered/Not Resolved]
  - Back pain [Recovering/Resolving]
  - Vomiting [Not Recovered/Not Resolved]

NARRATIVE: CASE EVENT DATE: 2016
